FAERS Safety Report 21591932 (Version 1)
Quarter: 2022Q4

REPORT INFORMATION
  Report Type: Spontaneous
  Country: US (occurrence: None)
  Receive Date: 20221112
  Receipt Date: 20221112
  Transmission Date: 20230113
  Serious: No
  Sender: FDA-Public Use
  Company Number: None

PATIENT
  Age: 25 Year
  Sex: Female
  Weight: 65.25 kg

DRUGS (1)
  1. NITROFURANTOIN MONOHYDRATE MACROCRYSTALS [Suspect]
     Active Substance: NITROFURANTOIN\NITROFURANTOIN MONOHYDRATE
     Indication: Urinary tract infection
     Dosage: OTHER QUANTITY : 1 CAPSULE(S);?FREQUENCY : TWICE A DAY;?
     Route: 048
     Dates: start: 20221026, end: 20221102

REACTIONS (23)
  - Abdominal pain upper [None]
  - Vomiting [None]
  - Rash pruritic [None]
  - Urticaria [None]
  - Oropharyngeal pain [None]
  - Eye pruritus [None]
  - Oral pruritus [None]
  - Pruritus [None]
  - Pruritus [None]
  - Pruritus [None]
  - Pain of skin [None]
  - Paraesthesia [None]
  - Peripheral swelling [None]
  - Arthralgia [None]
  - Arthropathy [None]
  - Livedo reticularis [None]
  - Urticaria [None]
  - Neuropathy peripheral [None]
  - Rash [None]
  - Eczema [None]
  - Swelling face [None]
  - Erythema [None]
  - Dermatitis [None]

NARRATIVE: CASE EVENT DATE: 20221026
